FAERS Safety Report 4741655-1 (Version None)
Quarter: 2005Q3

REPORT INFORMATION
  Report Type: 
  Country: None (occurrence: None)
  Receive Date: 20050808
  Receipt Date: 20050728
  Transmission Date: 20060218
  Serious: Yes (Death, Hospitalization)
  Sender: FDA-Public Use
  Company Number: 2005-06-0904

PATIENT
  Age: 43 Year
  Sex: Male
  Weight: 70 kg

DRUGS (7)
  1. VIRAFERONPEG [Suspect]
     Indication: HEPATITIS C
     Dosage: 72 UG SUBCUTANEOUS
     Route: 058
     Dates: start: 20041112, end: 20050425
  2. COPEGUS [Suspect]
     Indication: HEPATITIS C
     Dosage: 1000 MG QD ORAL
     Route: 048
     Dates: start: 20041112, end: 20050426
  3. ZIAGEN (AVACAVIR) [Concomitant]
  4. VIREAD [Concomitant]
  5. SUSTIVA [Concomitant]
  6. NEURONTIN [Concomitant]
  7. IMODIUM [Concomitant]

REACTIONS (2)
  - NERVOUS SYSTEM DISORDER [None]
  - THROMBOTIC THROMBOCYTOPENIC PURPURA [None]
